FAERS Safety Report 5948723-7 (Version None)
Quarter: 2008Q4

REPORT INFORMATION
  Report Type: 
  Country: None (occurrence: None)
  Receive Date: 20081107
  Receipt Date: 20081030
  Transmission Date: 20090506
  Serious: No
  Sender: FDA-Public Use
  Company Number: US024965

PATIENT
  Sex: Female

DRUGS (2)
  1. FENTORA [Suspect]
     Indication: BACK PAIN
     Dosage: 400 UG BUCCAL
     Route: 002
     Dates: start: 20070501
  2. FENTORA [Suspect]
     Indication: BACK PAIN
     Dosage: 1600 UG (800 UG, 2 IN 1 AS REQUIRED) DAILY BUCCAL
     Route: 002

REACTIONS (1)
  - DRUG PRESCRIBING ERROR [None]
